FAERS Safety Report 13534728 (Version 2)
Quarter: 2017Q2

REPORT INFORMATION
  Report Type: Spontaneous
  Country: GB (occurrence: GB)
  Receive Date: 20170511
  Receipt Date: 20170530
  Transmission Date: 20170830
  Serious: Yes (Hospitalization)
  Sender: FDA-Public Use
  Company Number: GB-ROCHE-1915829

PATIENT
  Age: 46 Year
  Sex: Female

DRUGS (4)
  1. SYMBICORT [Concomitant]
     Active Substance: BUDESONIDE\FORMOTEROL FUMARATE DIHYDRATE
     Indication: ASTHMA
     Dosage: UNK UNK, TID
     Route: 055
  2. LOSARTAN. [Concomitant]
     Active Substance: LOSARTAN
     Indication: HYPERSENSITIVITY
     Dosage: 25 MG, QD
     Route: 048
  3. XOLAIR [Suspect]
     Active Substance: OMALIZUMAB
     Indication: ASTHMA
     Route: 058
     Dates: start: 20140930
  4. LANSOPRAZOLE. [Concomitant]
     Active Substance: LANSOPRAZOLE
     Indication: GASTRIC DISORDER
     Dosage: 30 MG, QD
     Route: 048

REACTIONS (6)
  - Chest discomfort [Unknown]
  - Dermatitis contact [Recovered/Resolved]
  - Productive cough [Unknown]
  - Asthma [Unknown]
  - Dyspnoea [Unknown]
  - Pyrexia [Unknown]

NARRATIVE: CASE EVENT DATE: 20170214
